FAERS Safety Report 7481076-4 (Version None)
Quarter: 2011Q2

REPORT INFORMATION
  Report Type: 
  Country: None (occurrence: None)
  Receive Date: 20110516
  Receipt Date: 20110407
  Transmission Date: 20111010
  Serious: Yes (Hospitalization, Other)
  Sender: FDA-Public Use
  Company Number: US-BAYER-201036994NA

PATIENT
  Age: 47 Year
  Sex: Female
  Weight: 99.773 kg

DRUGS (5)
  1. ACETAMINOPHEN [Concomitant]
  2. PHENTERMINE [Concomitant]
     Indication: WEIGHT DECREASED
  3. YAZ [Suspect]
     Indication: PRODUCT USED FOR UNKNOWN INDICATION
     Dosage: UNK
     Route: 048
  4. FIORICET [Concomitant]
  5. IMITREX [Concomitant]
     Indication: MIGRAINE

REACTIONS (2)
  - MEMORY IMPAIRMENT [None]
  - INTRACRANIAL VENOUS SINUS THROMBOSIS [None]
